FAERS Safety Report 6826637-8 (Version None)
Quarter: 2010Q3

REPORT INFORMATION
  Report Type: 
  Country: None (occurrence: None)
  Receive Date: 20100709
  Receipt Date: 20100630
  Transmission Date: 20110219
  Serious: Yes (Life-Threatening, Other)
  Sender: FDA-Public Use
  Company Number: US-PFIZER INC-2010060163

PATIENT
  Sex: Female
  Weight: 94.785 kg

DRUGS (16)
  1. TIKOSYN [Interacting]
     Indication: ATRIAL FIBRILLATION
     Dosage: 500 UG, 2X/DAY
     Route: 048
     Dates: start: 20070101
  2. WELCHOL [Suspect]
     Indication: HYPERLIPIDAEMIA
     Dosage: 625 MG, 2X/DAY
     Route: 048
     Dates: start: 20091127
  3. WELCHOL [Suspect]
     Indication: HYPERCHOLESTEROLAEMIA
     Dosage: 625 MG, 4X/DAY
     Dates: end: 20100101
  4. WELCHOL [Suspect]
     Dosage: 1875 MG, 2X/DAY
  5. ORLISTAT [Concomitant]
     Dosage: FREQUENCY: 2X/DAY,
  6. BENICAR [Concomitant]
  7. VITACAL [Concomitant]
  8. COUMADIN [Concomitant]
  9. DIGOXIN [Concomitant]
  10. MULTI-VITAMINS [Concomitant]
  11. K-DUR [Concomitant]
  12. LASIX [Concomitant]
  13. OMEGA-3 MARINE TRIGLYCERIDES [Concomitant]
     Dosage: FREQUENCY: 2X/DAY,
  14. OMEPRAZOLE [Concomitant]
  15. SULAR [Concomitant]
  16. TOPROL-XL [Concomitant]
     Dosage: FREQUENCY: 2X/DAY,

REACTIONS (2)
  - DRUG INTERACTION [None]
  - LONG QT SYNDROME [None]
